FAERS Safety Report 8776955 (Version 1)
Quarter: 2012Q4

REPORT INFORMATION
  Report Type: 
  Country: US (occurrence: US)
  Receive Date: 20120911
  Receipt Date: 20120911
  Transmission Date: 20130627
  Serious: Yes (Other)
  Sender: FDA-Public Use
  Company Number: US-GLAXOSMITHKLINE-A0992167A

PATIENT
  Age: 6 Year
  Sex: Male

DRUGS (1)
  1. ADVAIR [Suspect]
     Indication: ASTHMA
     Dosage: 2PUFF Twice per day
     Route: 055
     Dates: start: 201204, end: 201207

REACTIONS (13)
  - Angina pectoris [Recovered/Resolved]
  - Asthma [Recovered/Resolved]
  - Tourette^s disorder [Recovered/Resolved]
  - Palpitations [Recovered/Resolved]
  - Tic [Recovered/Resolved]
  - Nervous system disorder [Recovered/Resolved]
  - Withdrawal syndrome [Recovered/Resolved]
  - Abnormal behaviour [Recovered/Resolved]
  - Speech disorder [Recovered/Resolved]
  - Head titubation [Recovered/Resolved]
  - Tremor [Recovered/Resolved]
  - Off label use [Recovered/Resolved]
  - Anger [Recovered/Resolved]
